FAERS Safety Report 12715445 (Version 1)
Quarter: 2016Q3

REPORT INFORMATION
  Report Type: Spontaneous
  Country: JP (occurrence: JP)
  Receive Date: 20160906
  Receipt Date: 20160906
  Transmission Date: 20161109
  Serious: Yes (Hospitalization, Other)
  Sender: FDA-Public Use
  Company Number: JP-APOTEX-2016AP011141

PATIENT
  Age: 31 Year
  Sex: Female

DRUGS (10)
  1. FLUNITRAZEPAM [Concomitant]
     Active Substance: FLUNITRAZEPAM
     Indication: INSOMNIA
     Route: 048
  2. PAXIL [Suspect]
     Active Substance: PAROXETINE HYDROCHLORIDE
     Indication: AUTONOMIC NERVOUS SYSTEM IMBALANCE
     Route: 048
     Dates: start: 200704
  3. LAMOTRIGINE. [Suspect]
     Active Substance: LAMOTRIGINE
     Dosage: 350 MG, UNK
     Route: 048
  4. VEGETAMIN-B TABLET [Concomitant]
     Indication: INSOMNIA
     Route: 048
  5. PHENOBAL ORAL DRUG UNSPECIFIED FORM [Concomitant]
     Route: 048
  6. LAMOTRIGINE. [Suspect]
     Active Substance: LAMOTRIGINE
     Indication: AFFECT LABILITY
     Dosage: 75 MG, BID
     Route: 048
     Dates: start: 20120117
  7. ROHYPNOL [Concomitant]
     Active Substance: FLUNITRAZEPAM
     Route: 065
  8. SOLANAX TABLET [Concomitant]
     Indication: ANXIETY
     Route: 048
  9. LIMAS TABLET [Concomitant]
     Indication: AFFECT LABILITY
     Route: 048
  10. JZOLOFT TABLET [Concomitant]
     Indication: DEPRESSION
     Route: 048

REACTIONS (7)
  - Coma [Recovered/Resolved]
  - Suicidal ideation [Unknown]
  - Depressive symptom [Unknown]
  - Affect lability [Unknown]
  - Stress [Unknown]
  - Overdose [Unknown]
  - Insomnia [Unknown]

NARRATIVE: CASE EVENT DATE: 20130402
